FAERS Safety Report 9972960 (Version 3)
Quarter: 2014Q1

REPORT INFORMATION
  Report Type: Spontaneous
  Country: ES (occurrence: ES)
  Receive Date: 20140306
  Receipt Date: 20140331
  Transmission Date: 20141002
  Serious: Yes (Other)
  Sender: FDA-Public Use
  Company Number: ES-PFIZER INC-2014060558

PATIENT
  Age: 72 Year
  Sex: Male

DRUGS (1)
  1. ACOVIL [Suspect]
     Indication: ACUTE MYOCARDIAL INFARCTION
     Dosage: STRENGTH: 2.5 MG
     Route: 048
     Dates: start: 2007, end: 2014

REACTIONS (3)
  - Abdominal pain [Recovered/Resolved]
  - Flatulence [Recovered/Resolved]
  - Diarrhoea [Recovered/Resolved]
